APPROVED DRUG PRODUCT: DEXTROSE 2.5% IN HALF-STRENGTH LACTATED RINGER'S IN PLASTIC CONTAINER
Active Ingredient: CALCIUM CHLORIDE; DEXTROSE; POTASSIUM CHLORIDE; SODIUM CHLORIDE; SODIUM LACTATE
Strength: 10MG/100ML;2.5GM/100ML;15MG/100ML;300MG/100ML;160MG/100ML
Dosage Form/Route: INJECTABLE;INJECTION
Application: N019634 | Product #001
Applicant: B BRAUN MEDICAL INC
Approved: Feb 24, 1988 | RLD: No | RS: No | Type: RX